FAERS Safety Report 22045986 (Version 4)
Quarter: 2023Q2

REPORT INFORMATION
  Report Type: Spontaneous
  Country: US (occurrence: US)
  Receive Date: 20230228
  Receipt Date: 20230515
  Transmission Date: 20230722
  Serious: Yes (Hospitalization, Other)
  Sender: FDA-Public Use
  Company Number: US-TEVA-2023-US-2847346

PATIENT
  Age: 24 Year
  Sex: Female
  Weight: 47.1 kg

DRUGS (2)
  1. PROVIGIL [Suspect]
     Active Substance: MODAFINIL
     Indication: Narcolepsy
     Dosage: 400 MILLIGRAM DAILY;
     Route: 065
     Dates: start: 2021, end: 20230122
  2. SUBOXONE [Concomitant]
     Active Substance: BUPRENORPHINE HYDROCHLORIDE\NALOXONE HYDROCHLORIDE
     Indication: Drug dependence
     Dosage: 16 MILLIGRAM DAILY;
     Dates: start: 2021

REACTIONS (9)
  - Haematoma [Recovered/Resolved]
  - Hepatitis C [Unknown]
  - Hepatitis [Unknown]
  - Haemorrhage in pregnancy [Unknown]
  - Mean cell volume increased [Unknown]
  - Mean cell haemoglobin increased [Unknown]
  - Ovarian cyst [Unknown]
  - Maternal exposure during pregnancy [Unknown]
  - COVID-19 [Unknown]

NARRATIVE: CASE EVENT DATE: 20221211
